FAERS Safety Report 7667382-9 (Version None)
Quarter: 2011Q3

REPORT INFORMATION
  Report Type: 
  Country: None (occurrence: None)
  Receive Date: 20110806
  Receipt Date: 20110427
  Transmission Date: 20111222
  Serious: No
  Sender: FDA-Public Use
  Company Number: US-ABBOTT-11P-163-0722014-00

PATIENT
  Sex: Male

DRUGS (1)
  1. NIASPAN [Suspect]
     Indication: BLOOD CHOLESTEROL
     Dates: start: 20110301

REACTIONS (1)
  - PRURITUS [None]
